FAERS Safety Report 6860735-8 (Version None)
Quarter: 2010Q3

REPORT INFORMATION
  Report Type: 
  Country: None (occurrence: None)
  Receive Date: 20100720
  Receipt Date: 20100707
  Transmission Date: 20110219
  Serious: Yes (Hospitalization, Other)
  Sender: FDA-Public Use
  Company Number: PHHY2010US37231

PATIENT
  Sex: Female

DRUGS (5)
  1. EXJADE [Suspect]
     Indication: SICKLE CELL ANAEMIA
     Dosage: 1500 MG DAILY
     Route: 048
     Dates: start: 20061010
  2. EXJADE [Suspect]
     Dosage: 1500 MG DAILY
     Route: 048
  3. FOLIC ACID [Concomitant]
     Dosage: 1 MG DAILY
     Route: 048
  4. SINGULAIR [Concomitant]
     Dosage: 10 MG DAILY
     Route: 048
  5. OXYCODONE HCL [Concomitant]
     Dosage: 5 MG, PRN
     Route: 048

REACTIONS (2)
  - CHOLECYSTECTOMY [None]
  - CHOLECYSTITIS [None]
